FAERS Safety Report 9846920 (Version 1)
Quarter: 2014Q1

REPORT INFORMATION
  Report Type: Spontaneous
  Country: US (occurrence: US)
  Receive Date: 20140127
  Receipt Date: 20140127
  Transmission Date: 20141002
  Serious: No
  Sender: FDA-Public Use
  Company Number: US-009507513-1311USA008681

PATIENT
  Age: 61 Year
  Sex: Female
  Weight: 102.4 kg

DRUGS (6)
  1. OXYTROL FOR WOMEN [Suspect]
     Indication: NOCTURIA
     Dosage: 1 DF, Q4D
     Route: 062
     Dates: start: 20131013, end: 20131022
  2. SIMVASTATIN [Concomitant]
     Indication: BLOOD CHOLESTEROL INCREASED
     Dosage: 40 MG, HS
  3. KEPPRA [Concomitant]
     Indication: PARTIAL SEIZURES
     Dosage: 1000 MG, BID
  4. VITAMIN D (UNSPECIFIED) [Concomitant]
     Indication: VITAMIN D DECREASED
     Dosage: 2000 IU, QD
  5. CALCIUM CARBONATE [Concomitant]
     Indication: MINERAL SUPPLEMENTATION
     Dosage: 1500 MG, QD
  6. TYLENOL EXTRA STRENGTH [Concomitant]
     Indication: PRODUCT USED FOR UNKNOWN INDICATION
     Dosage: 1000 MG, HS

REACTIONS (3)
  - Rash erythematous [Recovered/Resolved]
  - Drug ineffective [Unknown]
  - Product quality issue [Unknown]
